FAERS Safety Report 24608618 (Version 2)
Quarter: 2024Q4

REPORT INFORMATION
  Report Type: Spontaneous
  Country: US (occurrence: US)
  Receive Date: 20241112
  Receipt Date: 20241120
  Transmission Date: 20250114
  Serious: No
  Sender: SHIONOGI
  Company Number: US-shionogi-202400000145

PATIENT
  Age: 39 Year
  Sex: Female

DRUGS (2)
  1. CEFIDEROCOL [Suspect]
     Active Substance: CEFIDEROCOL
     Indication: Product used for unknown indication
     Route: 065
  2. VANCOMYCIN [Suspect]
     Active Substance: VANCOMYCIN
     Indication: Product used for unknown indication
     Route: 065

REACTIONS (1)
  - Rash [Unknown]
